FAERS Safety Report 12610245 (Version 2)
Quarter: 2016Q3

REPORT INFORMATION
  Report Type: Report from Study
  Country: US (occurrence: US)
  Receive Date: 20160801
  Receipt Date: 20160818
  Transmission Date: 20161109
  Serious: Yes (Hospitalization, Other)
  Sender: FDA-Public Use
  Company Number: US-GILEAD-2016-0226054

PATIENT
  Age: 20 Year
  Sex: Female

DRUGS (12)
  1. TACROLIMUS. [Concomitant]
     Active Substance: TACROLIMUS
  2. AMBRISENTAN [Suspect]
     Active Substance: AMBRISENTAN
     Indication: PULMONARY ARTERIAL HYPERTENSION
     Dosage: 5 MG, QD
     Route: 048
  3. K-TAB [Concomitant]
     Active Substance: POTASSIUM CHLORIDE
  4. ADCIRCA [Concomitant]
     Active Substance: TADALAFIL
  5. SULFAMETHOXAZOLE-TRIMETHOPRIM (SMZ) [Concomitant]
     Active Substance: SULFAMETHOXAZOLE\TRIMETHOPRIM
  6. WARFARIN [Concomitant]
     Active Substance: WARFARIN
  7. DIGOXIN. [Concomitant]
     Active Substance: DIGOXIN
  8. VALACYCLOVIR [Concomitant]
     Active Substance: VALACYCLOVIR HYDROCHLORIDE
  9. ERGOCALCIFEROL. [Concomitant]
     Active Substance: ERGOCALCIFEROL
  10. PREDNISONE. [Concomitant]
     Active Substance: PREDNISONE
  11. URSODIOL. [Concomitant]
     Active Substance: URSODIOL
  12. REMODULIN [Concomitant]
     Active Substance: TREPROSTINIL

REACTIONS (5)
  - Pyrexia [Recovered/Resolved]
  - Abdominal pain [Recovered/Resolved]
  - Vomiting [Recovered/Resolved]
  - Diarrhoea [Recovered/Resolved]
  - Sepsis [Recovered/Resolved]

NARRATIVE: CASE EVENT DATE: 201601
